FAERS Safety Report 21897993 (Version 1)
Quarter: 2023Q1

REPORT INFORMATION
  Report Type: Report from Study
  Country: US (occurrence: None)
  Receive Date: 20230123
  Receipt Date: 20230123
  Transmission Date: 20230418
  Serious: Yes (Hospitalization)
  Sender: FDA-Public Use
  Company Number: 2023A005908

PATIENT
  Age: 79 Year
  Sex: Female
  Weight: 56.7 kg

DRUGS (1)
  1. DALIRESP [Suspect]
     Active Substance: ROFLUMILAST
     Route: 048

REACTIONS (2)
  - Cardiac failure congestive [Unknown]
  - Drug ineffective [Unknown]
